FAERS Safety Report 5197732-7 (Version None)
Quarter: 2007Q1

REPORT INFORMATION
  Report Type: 
  Country: None (occurrence: None)
  Receive Date: 20070103
  Receipt Date: 20061211
  Transmission Date: 20070707
  Serious: Yes (Death)
  Sender: FDA-Public Use
  Company Number: US-JNJFOC-20060700414

PATIENT
  Sex: Female
  Weight: 90.72 kg

DRUGS (10)
  1. ORTHO EVRA [Suspect]
     Indication: MENSTRUATION IRREGULAR
     Route: 062
  2. TESTOSTERONE 2% CREAM [Concomitant]
     Indication: LIBIDO DECREASED
  3. ADVAIR DISKUS 100/50 [Concomitant]
     Indication: MULTIPLE ALLERGIES
  4. ADVAIR DISKUS 100/50 [Concomitant]
     Indication: ASTHMA
  5. SINGULAIR [Concomitant]
     Indication: MULTIPLE ALLERGIES
  6. SINGULAIR [Concomitant]
     Indication: ASTHMA
  7. ZYRTEC [Concomitant]
     Indication: MULTIPLE ALLERGIES
  8. ZYRTEC [Concomitant]
     Indication: ASTHMA
  9. ACETAMINOPHEN [Concomitant]
     Indication: DRUG USE FOR UNKNOWN INDICATION
  10. TESTOSTERONE [Concomitant]
     Indication: LIBIDO DECREASED

REACTIONS (1)
  - PULMONARY EMBOLISM [None]
